FAERS Safety Report 12912891 (Version 3)
Quarter: 2016Q4

REPORT INFORMATION
  Report Type: Report from Study
  Country: US (occurrence: US)
  Receive Date: 20161104
  Receipt Date: 20161230
  Transmission Date: 20170207
  Serious: Yes (Other)
  Sender: FDA-Public Use
  Company Number: US-SA-2016SA175406

PATIENT
  Age: 31 Year
  Sex: Female

DRUGS (1)
  1. LEMTRADA [Suspect]
     Active Substance: ALEMTUZUMAB
     Indication: MULTIPLE SCLEROSIS
     Route: 041
     Dates: start: 20150831, end: 20150904

REACTIONS (19)
  - Gait disturbance [Unknown]
  - Thyroid function test abnormal [Not Recovered/Not Resolved]
  - Poor venous access [Recovered/Resolved]
  - Hypothyroidism [Not Recovered/Not Resolved]
  - Optic neuritis [Unknown]
  - Confusional state [Unknown]
  - Mental impairment [Unknown]
  - Cough [Not Recovered/Not Resolved]
  - Heart rate increased [Not Recovered/Not Resolved]
  - Urinary tract infection fungal [Unknown]
  - Basedow^s disease [Not Recovered/Not Resolved]
  - Thyroid mass [Not Recovered/Not Resolved]
  - Malaise [Not Recovered/Not Resolved]
  - Visual acuity reduced [Unknown]
  - Dysstasia [Unknown]
  - Blood glucose increased [Not Recovered/Not Resolved]
  - Weight decreased [Not Recovered/Not Resolved]
  - Multiple sclerosis relapse [Unknown]
  - Urinary tract infection bacterial [Unknown]

NARRATIVE: CASE EVENT DATE: 2016
